FAERS Safety Report 5960909-4 (Version None)
Quarter: 2008Q4

REPORT INFORMATION
  Report Type: 
  Country: None (occurrence: None)
  Receive Date: 20081121
  Receipt Date: 20081110
  Transmission Date: 20090506
  Serious: Yes (Hospitalization)
  Sender: FDA-Public Use
  Company Number: ES-JNJFOC-20081104955

PATIENT
  Sex: Male
  Weight: 82 kg

DRUGS (11)
  1. DURAGESIC-100 [Suspect]
     Indication: TUMOUR PAIN
     Route: 062
  2. ORAMORPH SR [Suspect]
     Indication: TUMOUR PAIN
     Route: 065
  3. CARBOPLATIN [Suspect]
     Route: 042
  4. CARBOPLATIN [Suspect]
     Indication: NON-SMALL CELL LUNG CANCER
     Route: 042
  5. PACLITAXEL [Concomitant]
     Route: 042
  6. PACLITAXEL [Concomitant]
     Indication: NON-SMALL CELL LUNG CANCER
     Route: 042
  7. AG-013, 736 [Concomitant]
     Route: 048
  8. AG-013, 736 [Concomitant]
     Indication: NON-SMALL CELL LUNG CANCER
     Route: 048
  9. SIMVASTIN [Concomitant]
     Indication: DYSLIPIDAEMIA
     Route: 065
  10. CYMBALTA [Concomitant]
     Indication: TUMOUR PAIN
     Route: 065
  11. RIVOTRIL [Concomitant]
     Indication: PROPHYLAXIS
     Route: 065

REACTIONS (1)
  - RENAL FAILURE ACUTE [None]
